FAERS Safety Report 5339818-X (Version None)
Quarter: 2007Q2

REPORT INFORMATION
  Report Type: 
  Country: None (occurrence: None)
  Receive Date: 20070524
  Receipt Date: 20070516
  Transmission Date: 20071010
  Serious: Yes (Other)
  Sender: FDA-Public Use
  Company Number: 2007321405

PATIENT
  Sex: Female
  Weight: 58.9676 kg

DRUGS (3)
  1. ROGAINE [Suspect]
     Indication: ALOPECIA
     Dosage: 1 ML TWICE A DAY, TOPICAL
     Route: 061
     Dates: start: 19930101
  2. ATENOLOL [Concomitant]
  3. DIAZIDE (GLICLAZIDE) [Concomitant]

REACTIONS (2)
  - ALOPECIA [None]
  - IMMUNE SYSTEM DISORDER [None]
